FAERS Safety Report 9060966 (Version 7)
Quarter: 2013Q3

REPORT INFORMATION
  Report Type: Spontaneous
  Country: US (occurrence: US)
  Receive Date: 20130213
  Receipt Date: 20130729
  Transmission Date: 20140515
  Serious: Yes (Hospitalization, Other)
  Sender: FDA-Public Use
  Company Number: US-009507513-1302USA002404

PATIENT
  Sex: Female
  Weight: 93.42 kg

DRUGS (2)
  1. PEGINTRON [Suspect]
     Indication: HEPATITIS C
     Dosage: REDIPEN
     Dates: start: 20120928, end: 20130606
  2. REBETOL [Suspect]
     Indication: HEPATITIS C
     Dosage: UNK
     Route: 048
     Dates: start: 20120928, end: 20130606

REACTIONS (49)
  - Dehydration [Unknown]
  - Dehydration [Unknown]
  - Dehydration [Unknown]
  - Leukopenia [Unknown]
  - White blood cell count decreased [Unknown]
  - Transfusion [Unknown]
  - Cholecystectomy [Unknown]
  - Hallucination [Unknown]
  - Hallucination [Unknown]
  - Haemoglobin decreased [Unknown]
  - Anaemia [Unknown]
  - Anaemia [Unknown]
  - Anaemia [Unknown]
  - Anaemia [Unknown]
  - Anaemia [Unknown]
  - Haemoglobin decreased [Unknown]
  - VIIth nerve paralysis [Unknown]
  - Dehydration [Unknown]
  - Decreased appetite [Unknown]
  - Somnolence [Unknown]
  - Agitation [Unknown]
  - Malnutrition [Unknown]
  - Vomiting [Unknown]
  - Vomiting [Unknown]
  - Cholecystitis [Unknown]
  - Malnutrition [Unknown]
  - Weight decreased [Unknown]
  - Dysgeusia [Unknown]
  - Pain [Unknown]
  - Mouth ulceration [Unknown]
  - Leukopenia [Unknown]
  - Rash [Unknown]
  - Fatigue [Unknown]
  - Asthenia [Unknown]
  - White blood cell count decreased [Unknown]
  - Nausea [Unknown]
  - Decreased appetite [Unknown]
  - Dyspnoea [Unknown]
  - White blood cell count decreased [Unknown]
  - Blood potassium decreased [Unknown]
  - Memory impairment [Unknown]
  - Vomiting [Unknown]
  - Malnutrition [Unknown]
  - Agitation [Unknown]
  - Alopecia [Unknown]
  - Dysgeusia [Unknown]
  - Nausea [Unknown]
  - Pyrexia [Unknown]
  - Dehydration [Unknown]
